FAERS Safety Report 8584062-6 (Version None)
Quarter: 2012Q3

REPORT INFORMATION
  Report Type: 
  Country: None (occurrence: None)
  Receive Date: 20120810
  Receipt Date: 20120730
  Transmission Date: 20120928
  Serious: No
  Sender: FDA-Public Use
  Company Number: US-009507513-1207USA009504

PATIENT

DRUGS (7)
  1. PROPIONATE DE SODIUM [Concomitant]
  2. SINGULAIR [Suspect]
     Indication: ASTHMA
     Dosage: 10 MG, QD
     Route: 048
     Dates: start: 20120322, end: 20120401
  3. TIMOLOL MALEATE [Concomitant]
  4. PRAVASTATIN SODIUM [Concomitant]
  5. ALBUTEROL [Concomitant]
  6. PULMICORT [Concomitant]
  7. FLUTICASONE PROPIONATE [Concomitant]

REACTIONS (3)
  - CARDIAC FLUTTER [None]
  - DRUG INEFFECTIVE [None]
  - AGITATION [None]
